FAERS Safety Report 9173469 (Version 1)
Quarter: 2013Q1

REPORT INFORMATION
  Report Type: Spontaneous
  Country: GB (occurrence: None)
  Receive Date: 20130314
  Receipt Date: 20130314
  Transmission Date: 20140127
  Serious: Yes (Hospitalization)
  Sender: FDA-Public Use
  Company Number: 2013-03665

PATIENT
  Age: 56 Year
  Sex: Female
  Weight: 58 kg

DRUGS (2)
  1. MIRTAZAPINE (UNKNOWN) (MIRTAZAPINE) UNK, UNKUNK [Suspect]
     Indication: DEPRESSION
     Route: 048
     Dates: start: 20050801, end: 200512
  2. FERSADAY (FERROUS FUMARATE) [Concomitant]
     Route: 048
     Dates: start: 20050801, end: 200512

REACTIONS (2)
  - Abnormal behaviour [None]
  - Tremor [None]
